FAERS Safety Report 9237242 (Version 9)
Quarter: 2016Q1

REPORT INFORMATION
  Report Type: Spontaneous
  Country: US (occurrence: US)
  Receive Date: 20130417
  Receipt Date: 20160324
  Transmission Date: 20160526
  Serious: No
  Sender: FDA-Public Use
  Company Number: US-009507513-1304USA006805

PATIENT
  Sex: Male
  Weight: 82.54 kg

DRUGS (4)
  1. PROSCAR [Suspect]
     Active Substance: FINASTERIDE
     Indication: ALOPECIA
     Dosage: 5 MG, QD
     Route: 048
     Dates: start: 20070330, end: 20100107
  2. PROSCAR [Suspect]
     Active Substance: FINASTERIDE
     Dosage: 5 MG, TAKE 1/4 PORTION DAILY
     Route: 048
     Dates: start: 2007
  3. PROPECIA [Suspect]
     Active Substance: FINASTERIDE
     Indication: ANDROGENETIC ALOPECIA
     Dosage: 1 MG, ONCE A DAY
     Route: 048
     Dates: start: 2002, end: 20070330
  4. AMBIEN [Suspect]
     Active Substance: ZOLPIDEM TARTRATE
     Indication: PRODUCT USED FOR UNKNOWN INDICATION
     Route: 065

REACTIONS (15)
  - Wrong technique in product usage process [Unknown]
  - Erectile dysfunction [Not Recovered/Not Resolved]
  - Urine flow decreased [Unknown]
  - Social fear [Unknown]
  - Insomnia [Unknown]
  - Drug administration error [Unknown]
  - Sexual dysfunction [Not Recovered/Not Resolved]
  - Dependence [Unknown]
  - Ejaculation delayed [Unknown]
  - Urinary straining [Unknown]
  - Abdominal pain [Unknown]
  - Intervertebral disc protrusion [Unknown]
  - Social problem [Unknown]
  - Generalised anxiety disorder [Unknown]
  - Libido decreased [Not Recovered/Not Resolved]

NARRATIVE: CASE EVENT DATE: 2005
